FAERS Safety Report 16243771 (Version 1)
Quarter: 2019Q2

REPORT INFORMATION
  Report Type: Report from Study
  Country: US (occurrence: US)
  Receive Date: 20190426
  Receipt Date: 20190426
  Transmission Date: 20190711
  Serious: Yes (Hospitalization)
  Sender: FDA-Public Use
  Company Number: US-TESARO-2019-TSO01013-US

PATIENT
  Age: 71 Year
  Sex: Female

DRUGS (2)
  1. ZEJULA [Suspect]
     Active Substance: NIRAPARIB
     Indication: OVARIAN CANCER
     Dosage: 100 MG EVERY OTHER DAY, AND ALTERNATE 200 MG EVERY OTHER DAY
     Route: 065
     Dates: start: 20190208, end: 20190411
  2. ZEJULA [Suspect]
     Active Substance: NIRAPARIB
     Indication: BREAST CANCER FEMALE
     Dosage: 100 MG, QD
     Route: 048
     Dates: start: 20181130

REACTIONS (9)
  - Underdose [Unknown]
  - Carbohydrate antigen 125 increased [Unknown]
  - Product use in unapproved indication [Unknown]
  - Pleural effusion [Unknown]
  - Decreased appetite [Recovered/Resolved]
  - Depression [Unknown]
  - Dyspnoea [Unknown]
  - Fatigue [Not Recovered/Not Resolved]
  - Inappropriate schedule of product administration [Unknown]

NARRATIVE: CASE EVENT DATE: 20181130
